FAERS Safety Report 24937417 (Version 2)
Quarter: 2025Q1

REPORT INFORMATION
  Report Type: Spontaneous
  Country: CA (occurrence: CA)
  Receive Date: 20250206
  Receipt Date: 20250207
  Transmission Date: 20250408
  Serious: Yes (Other)
  Sender: PFIZER
  Company Number: CA-PFIZER INC-202500025987

PATIENT
  Age: 63 Year
  Sex: Male

DRUGS (3)
  1. CIBINQO [Suspect]
     Active Substance: ABROCITINIB
     Indication: Dermatitis atopic
     Dosage: 200 MG, 1X/DAY
     Route: 048
     Dates: start: 20240125, end: 2025
  2. BETADERM [Concomitant]
     Active Substance: BETAMETHASONE VALERATE
     Dates: start: 202309
  3. EUCRISA [Concomitant]
     Active Substance: CRISABOROLE
     Dates: start: 202306

REACTIONS (1)
  - Prostate cancer [Unknown]
